FAERS Safety Report 11440286 (Version 1)
Quarter: 2015Q3

REPORT INFORMATION
  Report Type: Spontaneous
  Country: US (occurrence: US)
  Receive Date: 20150901
  Receipt Date: 20150901
  Transmission Date: 20151125
  Serious: No
  Sender: FDA-Public Use
  Company Number: US-ROCHE-1129081

PATIENT
  Sex: Male

DRUGS (1)
  1. PEG-INTERFERON ALFA 2A [Suspect]
     Active Substance: PEGINTERFERON ALFA-2A
     Indication: PRODUCT USED FOR UNKNOWN INDICATION
     Route: 065

REACTIONS (7)
  - Influenza like illness [Unknown]
  - Full blood count decreased [Unknown]
  - Diarrhoea [Unknown]
  - Anal pruritus [Unknown]
  - Dyspnoea [Unknown]
  - Insomnia [Unknown]
  - Rash [Unknown]
